FAERS Safety Report 4753164-4 (Version None)
Quarter: 2005Q3

REPORT INFORMATION
  Report Type: 
  Country: None (occurrence: None)
  Receive Date: 20050823
  Receipt Date: 20050805
  Transmission Date: 20060218
  Serious: Yes (Hospitalization, Other)
  Sender: FDA-Public Use
  Company Number: US_0411107545

PATIENT
  Age: 69 Year
  Sex: Female
  Weight: 109 kg

DRUGS (15)
  1. ZYPREXA [Suspect]
     Indication: BIPOLAR DISORDER
     Dosage: 7.5 MG/2 DAY
     Dates: start: 19970101, end: 20040101
  2. ACTOS [Concomitant]
  3. DIVALPROEX SODIUM [Concomitant]
  4. GLYBURIDE [Concomitant]
  5. INSULIN [Concomitant]
  6. HUMULIN MIX 30/70 [Concomitant]
  7. IMDUR [Concomitant]
  8. DITROPAN XL [Concomitant]
  9. LASIX [Concomitant]
  10. DEMADEX [Concomitant]
  11. DEPAKOTE [Concomitant]
  12. LORTAB [Concomitant]
  13. LOTREL [Concomitant]
  14. K-DUR 10 [Concomitant]
  15. NORVASC [Concomitant]

REACTIONS (12)
  - ARTHRITIS [None]
  - BACK PAIN [None]
  - CARDIAC FAILURE CONGESTIVE [None]
  - CELLULITIS [None]
  - CRYING [None]
  - DIABETES MELLITUS INSULIN-DEPENDENT [None]
  - DIABETIC COMA [None]
  - DYSURIA [None]
  - INSOMNIA [None]
  - OBESITY [None]
  - STASIS DERMATITIS [None]
  - URINARY INCONTINENCE [None]
